FAERS Safety Report 25780814 (Version 1)
Quarter: 2025Q3

REPORT INFORMATION
  Report Type: Spontaneous
  Country: TR (occurrence: TR)
  Receive Date: 20250909
  Receipt Date: 20250909
  Transmission Date: 20251020
  Serious: Yes (Death, Other)
  Sender: INCYTE
  Company Number: TR-002147023-NVSC2025TR139493

PATIENT

DRUGS (1)
  1. RUXOLITINIB [Suspect]
     Active Substance: RUXOLITINIB
     Indication: Product used for unknown indication
     Dosage: 1 DOSAGE FORM, BID (ONE TABLET IN THE MORNING AND ONE IN THE EVENING) (FOR NEARLY 10 YEARS)
     Route: 065

REACTIONS (1)
  - Death [Fatal]
